FAERS Safety Report 25268618 (Version 1)
Quarter: 2025Q2

REPORT INFORMATION
  Report Type: Spontaneous
  Country: US (occurrence: None)
  Receive Date: 20250504
  Receipt Date: 20250504
  Transmission Date: 20250716
  Serious: Yes (Hospitalization, Disabling, Other)
  Sender: FDA-CTU
  Company Number: None

PATIENT
  Age: 26 Year
  Sex: Female
  Weight: 63 kg

DRUGS (1)
  1. BOTOX [Suspect]
     Active Substance: ONABOTULINUMTOXINA
     Indication: Migraine
     Route: 030
     Dates: start: 20250213, end: 20250313

REACTIONS (6)
  - Muscle disorder [None]
  - Paralysis [None]
  - Diplegia [None]
  - Pain [None]
  - Neuralgia [None]
  - Botulism [None]

NARRATIVE: CASE EVENT DATE: 20250227
